FAERS Safety Report 6725268-8 (Version None)
Quarter: 2010Q2

REPORT INFORMATION
  Report Type: 
  Country: None (occurrence: None)
  Receive Date: 20100514
  Receipt Date: 20100503
  Transmission Date: 20101027
  Serious: Yes (Life-Threatening, Hospitalization, Other)
  Sender: FDA-Public Use
  Company Number: FR-EISAI INC.-E3810-03782-SPO-FR

PATIENT
  Sex: Female
  Weight: 59 kg

DRUGS (9)
  1. PARIET (RABEPRAZOLE) [Suspect]
     Route: 048
     Dates: start: 20090312, end: 20100329
  2. FUROSEMIDE [Concomitant]
     Route: 065
  3. LEVOTHYROXINE SODIUM [Concomitant]
     Route: 065
  4. DIGOXIN [Concomitant]
     Route: 065
  5. ACENOCOUMAROL [Concomitant]
     Route: 065
  6. INSULIN GLARGINE [Concomitant]
     Route: 065
  7. PERINDOPRIL [Concomitant]
     Route: 065
  8. GABAPENTIN [Concomitant]
     Route: 065
  9. REPAGLINIDE [Concomitant]
     Route: 065

REACTIONS (7)
  - ANAEMIA [None]
  - GASTROINTESTINAL HAEMORRHAGE [None]
  - LOSS OF CONSCIOUSNESS [None]
  - MALAISE [None]
  - MELAENA [None]
  - ULCER [None]
  - URINARY TRACT DISORDER [None]
